FAERS Safety Report 13618871 (Version 11)
Quarter: 2017Q4

REPORT INFORMATION
  Report Type: Spontaneous
  Country: US (occurrence: US)
  Receive Date: 20170606
  Receipt Date: 20171023
  Transmission Date: 20180320
  Serious: Yes (Hospitalization)
  Sender: FDA-Public Use
  Company Number: US-ACTELION-A-NJ2017-154478

PATIENT
  Age: 61 Year
  Sex: Female
  Weight: 63.49 kg

DRUGS (37)
  1. NITRO-BID [Concomitant]
     Active Substance: NITROGLYCERIN
  2. ONDANSETRON [Concomitant]
     Active Substance: ONDANSETRON
  3. POTASSIUM CHLORIDE ATLANTIC [Concomitant]
  4. UPTRAVI [Suspect]
     Active Substance: SELEXIPAG
     Dosage: 400 MCG, BID
     Route: 048
     Dates: start: 20170524
  5. VITAMIN D [Concomitant]
     Active Substance: CHOLECALCIFEROL
  6. OXYCODONE/APAP [Concomitant]
     Active Substance: ACETAMINOPHEN\OXYCODONE HYDROCHLORIDE
  7. HYDROMORPHONE [Concomitant]
     Active Substance: HYDROMORPHONE
  8. NORVASC [Concomitant]
     Active Substance: AMLODIPINE BESYLATE
  9. COREG [Concomitant]
     Active Substance: CARVEDILOL
  10. UPTRAVI [Suspect]
     Active Substance: SELEXIPAG
     Dosage: 600 MCG, BID
     Route: 048
  11. UPTRAVI [Suspect]
     Active Substance: SELEXIPAG
     Dosage: 1400 MCG, BID
     Route: 048
  12. OPSUMIT [Suspect]
     Active Substance: MACITENTAN
     Indication: PULMONARY HYPERTENSION
     Dosage: 10 MG, QD
     Route: 048
     Dates: start: 20170306
  13. NEXIUM [Concomitant]
     Active Substance: ESOMEPRAZOLE MAGNESIUM
  14. DILAUDID [Concomitant]
     Active Substance: HYDROMORPHONE HYDROCHLORIDE
  15. CLOTRIMAZOLE. [Concomitant]
     Active Substance: CLOTRIMAZOLE
  16. XANAX [Concomitant]
     Active Substance: ALPRAZOLAM
  17. UPTRAVI [Suspect]
     Active Substance: SELEXIPAG
     Dosage: 200 MCG, BID
     Route: 048
  18. RANITIDINE. [Concomitant]
     Active Substance: RANITIDINE
  19. PREDNISONE. [Suspect]
     Active Substance: PREDNISONE
     Indication: PRODUCT USED FOR UNKNOWN INDICATION
     Dosage: 60 MG, QD
     Route: 065
  20. FOLIC ACID. [Concomitant]
     Active Substance: FOLIC ACID
  21. VALTREX [Concomitant]
     Active Substance: VALACYCLOVIR HYDROCHLORIDE
  22. AMLODIPINE [Concomitant]
     Active Substance: AMLODIPINE BESYLATE
  23. CELLCEPT [Suspect]
     Active Substance: MYCOPHENOLATE MOFETIL\MYCOPHENOLATE MOFETIL HYDROCHLORIDE
     Indication: PRODUCT USED FOR UNKNOWN INDICATION
     Route: 065
  24. CARAFATE [Concomitant]
     Active Substance: SUCRALFATE
  25. PROVENTIL [Concomitant]
     Active Substance: ALBUTEROL
  26. IRON [Concomitant]
     Active Substance: IRON
  27. CRESTOR [Concomitant]
     Active Substance: ROSUVASTATIN CALCIUM
  28. UPTRAVI [Suspect]
     Active Substance: SELEXIPAG
     Dosage: 1200 MCG, BID
     Route: 048
  29. PREDNISONE. [Suspect]
     Active Substance: PREDNISONE
     Dosage: 40 MG, QD
     Route: 065
  30. SYMBICORT [Suspect]
     Active Substance: BUDESONIDE\FORMOTEROL FUMARATE DIHYDRATE
     Indication: PRODUCT USED FOR UNKNOWN INDICATION
     Route: 065
  31. ASPIRIN. [Concomitant]
     Active Substance: ASPIRIN
  32. UPTRAVI [Suspect]
     Active Substance: SELEXIPAG
     Indication: PULMONARY HYPERTENSION
     Dosage: 1600 MCG, BID
     Route: 048
  33. PROLIA [Suspect]
     Active Substance: DENOSUMAB
     Indication: PRODUCT USED FOR UNKNOWN INDICATION
     Route: 065
  34. LACRISERT [Concomitant]
     Active Substance: HYDROXYPROPYL CELLULOSE
  35. HYDROCHLORTHIAZID [Concomitant]
     Active Substance: HYDROCHLOROTHIAZIDE
  36. SUCRALFATE. [Concomitant]
     Active Substance: SUCRALFATE
  37. RESTORIL [Concomitant]
     Active Substance: TEMAZEPAM

REACTIONS (65)
  - Unevaluable event [Unknown]
  - Nausea [Unknown]
  - Oedema peripheral [Unknown]
  - Weight increased [Unknown]
  - Pulmonary mass [Unknown]
  - Candida infection [Unknown]
  - Hypertension [Unknown]
  - Pyrexia [Unknown]
  - Anxiety [Unknown]
  - Dry mouth [Unknown]
  - Oral candidiasis [Unknown]
  - Arthralgia [Unknown]
  - Night sweats [Unknown]
  - Neuralgia [Unknown]
  - Oral herpes [Unknown]
  - Rash [Unknown]
  - Septic shock [Unknown]
  - Chest discomfort [Unknown]
  - Pulmonary arterial pressure decreased [Unknown]
  - Drug dose omission [Unknown]
  - Constipation [Unknown]
  - Limb injury [Unknown]
  - Herpes zoster [Unknown]
  - Generalised tonic-clonic seizure [Unknown]
  - Pneumonia [Unknown]
  - Dysphemia [Unknown]
  - Flatulence [Unknown]
  - Muscle spasms [Unknown]
  - Initial insomnia [Unknown]
  - Vaginal infection [Unknown]
  - Raynaud^s phenomenon [Unknown]
  - Gangrene [Unknown]
  - Retinal disorder [Unknown]
  - Delirium [Unknown]
  - Pain [Unknown]
  - Headache [Unknown]
  - Dyspnoea [Unknown]
  - Asthenia [Unknown]
  - Memory impairment [Unknown]
  - Anaemia [Unknown]
  - Aphthous ulcer [Unknown]
  - Systemic lupus erythematosus [Unknown]
  - Sepsis [Unknown]
  - Loss of consciousness [Unknown]
  - Seizure [Unknown]
  - Malaise [Unknown]
  - Abdominal pain upper [Unknown]
  - Feeling drunk [Unknown]
  - Decreased appetite [Unknown]
  - Abdominal pain [Unknown]
  - Energy increased [Unknown]
  - Infection [Unknown]
  - Fungal infection [Unknown]
  - Fungal skin infection [Unknown]
  - Heart rate increased [Unknown]
  - Gastrooesophageal reflux disease [Unknown]
  - Spinal fracture [Unknown]
  - Cataract [Unknown]
  - Frequent bowel movements [Unknown]
  - Oedema [Unknown]
  - Dizziness [Unknown]
  - Fatigue [Unknown]
  - Abdominal distension [Unknown]
  - Cellulitis [Unknown]
  - Pain in jaw [Unknown]

NARRATIVE: CASE EVENT DATE: 2017
